FAERS Safety Report 8894749 (Version 2)
Quarter: 2012Q4

REPORT INFORMATION
  Report Type: 
  Country: JP (occurrence: JP)
  Receive Date: 20121107
  Receipt Date: 20121129
  Transmission Date: 20130627
  Serious: Yes (Hospitalization)
  Sender: FDA-Public Use
  Company Number: JP-AMGEN-JPNSP2012070681

PATIENT
  Age: 88 Year
  Sex: Male

DRUGS (1)
  1. VECTIBIX [Suspect]
     Indication: COLORECTAL CANCER METASTATIC
     Dosage: UNK UNK, q2wk
     Route: 041
     Dates: start: 2010, end: 201209

REACTIONS (2)
  - Cardio-respiratory arrest [Recovering/Resolving]
  - Hyperkalaemia [Unknown]
